FAERS Safety Report 6844493-9 (Version None)
Quarter: 2010Q2

REPORT INFORMATION
  Report Type: 
  Country: None (occurrence: None)
  Receive Date: 20100629
  Receipt Date: 20100413
  Transmission Date: 20101027
  Serious: No
  Sender: FDA-Public Use
  Company Number: US-WYE-H14704110

PATIENT
  Age: 31 Year
  Sex: Female
  Weight: 68.1 kg

DRUGS (2)
  1. PRISTIQ [Suspect]
     Indication: GENERALISED ANXIETY DISORDER
     Dosage: 50 MG 1X PER A DAY
     Dates: start: 20100412
  2. PRISTIQ [Suspect]
     Indication: MAJOR DEPRESSION
     Dosage: 50 MG 1X PER A DAY
     Dates: start: 20100412

REACTIONS (2)
  - HYPERHIDROSIS [None]
  - RESTLESSNESS [None]
